FAERS Safety Report 5283691-5 (Version None)
Quarter: 2007Q1

REPORT INFORMATION
  Report Type: 
  Country: None (occurrence: None)
  Receive Date: 20070327
  Receipt Date: 20070314
  Transmission Date: 20070707
  Serious: Yes (Hospitalization)
  Sender: FDA-Public Use
  Company Number: T200700317

PATIENT
  Age: 66 Year
  Sex: Female
  Weight: 78 kg

DRUGS (5)
  1. ULTRA-TECHNEKOW [Suspect]
     Indication: CARDIAC STRESS TEST
     Dosage: 10 MCI SINGLE, INTRAVENOUS ; 30 MGL SINGLE INTRAVENOUS
     Route: 042
     Dates: start: 20070220, end: 20070220
  2. ULTRA-TECHNEKOW [Suspect]
     Indication: CARDIAC STRESS TEST
     Dosage: 10 MCI SINGLE, INTRAVENOUS ; 30 MGL SINGLE INTRAVENOUS
     Route: 042
     Dates: start: 20070220, end: 20070220
  3. CARDIOLITE [Suspect]
     Indication: CARDIAC STRESS TEST
     Dosage: SINGLE, INTRAVENOUS
     Route: 042
     Dates: start: 20070220, end: 20070220
  4. CARDIOLITE [Suspect]
     Indication: CARDIAC STRESS TEST
     Dosage: SINGLE, INTRAVENOUS
     Route: 042
     Dates: start: 20070220, end: 20070220
  5. ADENOSCAN [Suspect]
     Indication: CARDIAC STRESS TEST
     Dosage: 60 MG, SINGLE, IV BOLUS
     Route: 040
     Dates: start: 20070220, end: 20070220

REACTIONS (3)
  - HEADACHE [None]
  - NAUSEA [None]
  - ORTHOSTATIC HYPOTENSION [None]
